FAERS Safety Report 5615960-0 (Version None)
Quarter: 2008Q1

REPORT INFORMATION
  Report Type: 
  Country: None (occurrence: None)
  Receive Date: 20080206
  Receipt Date: 20080129
  Transmission Date: 20080703
  Serious: Yes (Congenital Anomaly)
  Sender: FDA-Public Use
  Company Number: GB-PFIZER INC-2007031134

PATIENT
  Sex: Male
  Weight: 3.37 kg

DRUGS (7)
  1. VIRACEPT [Suspect]
     Indication: HIV INFECTION
     Dosage: DAILY DOSE:2500MG
     Dates: start: 20040130, end: 20040601
  2. COMBIVIR [Suspect]
     Indication: HIV INFECTION
     Dosage: DAILY DOSE:600MG
     Dates: start: 20040130, end: 20040601
  3. KALETRA [Suspect]
     Indication: HIV INFECTION
     Dosage: DAILY DOSE:600MG
  4. RETROVIR [Suspect]
     Indication: HIV INFECTION
     Dosage: DAILY DOSE:600MG
     Dates: start: 20040601, end: 20040720
  5. VIREAD [Suspect]
     Indication: HIV INFECTION
     Dosage: DAILY DOSE:300MG
     Dates: start: 20040601, end: 20040720
  6. CRIXIVAN [Suspect]
     Dates: start: 20040601, end: 20040720
  7. FOLIC ACID [Concomitant]

REACTIONS (6)
  - ABDOMINAL DISTENSION [None]
  - ABDOMINAL HERNIA [None]
  - CARDIAC MURMUR [None]
  - CONGENITAL ANOMALY [None]
  - CRYPTORCHISM [None]
  - DRUG EXPOSURE DURING PREGNANCY [None]
